FAERS Safety Report 12298645 (Version 2)
Quarter: 2016Q2

REPORT INFORMATION
  Report Type: Spontaneous
  Country: US (occurrence: US)
  Receive Date: 20160425
  Receipt Date: 20160427
  Transmission Date: 20160815
  Serious: No
  Sender: FDA-Public Use
  Company Number: US-HORIZON-ACT-0098-2016

PATIENT
  Age: 50 Year
  Sex: Female

DRUGS (1)
  1. ACTIMMUNE [Suspect]
     Active Substance: INTERFERON GAMMA-1B
     Indication: CHRONIC GRANULOMATOUS DISEASE
     Dosage: 2.05 ML TIW
     Dates: start: 20121219

REACTIONS (2)
  - Prescribed underdose [Unknown]
  - Pyrexia [Unknown]
